FAERS Safety Report 13844886 (Version 10)
Quarter: 2018Q2

REPORT INFORMATION
  Report Type: Spontaneous
  Country: JP (occurrence: JP)
  Receive Date: 20170808
  Receipt Date: 20180531
  Transmission Date: 20180711
  Serious: Yes (Death, Other)
  Sender: FDA-Public Use
  Company Number: JP-009507513-1708JPN000650J

PATIENT
  Age: 56 Year
  Sex: Male
  Weight: 60 kg

DRUGS (10)
  1. CRAVIT [Concomitant]
     Active Substance: LEVOFLOXACIN
     Indication: PROPHYLAXIS
     Dosage: 500.0 MG, QD
     Route: 041
     Dates: end: 20170729
  2. OXYCONTIN [Concomitant]
     Active Substance: OXYCODONE HYDROCHLORIDE
     Indication: SQUAMOUS CELL CARCINOMA OF LUNG
     Dosage: 10.0 MG, BID
     Route: 048
     Dates: end: 20170714
  3. KEYTRUDA [Suspect]
     Active Substance: PEMBROLIZUMAB
     Indication: SQUAMOUS CELL CARCINOMA OF LUNG
     Dosage: 200 MG, Q3W
     Route: 041
     Dates: start: 20170530, end: 20170711
  4. TAKEPRON [Concomitant]
     Active Substance: LANSOPRAZOLE
     Indication: PROPHYLAXIS
     Dosage: 15.0 MG, QD
     Route: 048
     Dates: end: 20170717
  5. GLYCEOL [Concomitant]
     Active Substance: GLYCERIN
     Indication: SQUAMOUS CELL CARCINOMA OF LUNG
     Dosage: 200 ML, QD
     Route: 051
     Dates: start: 20170619, end: 20170729
  6. SENNA [Concomitant]
     Active Substance: SENNA LEAF\SENNOSIDES\SENNOSIDES A AND B
     Indication: SQUAMOUS CELL CARCINOMA OF LUNG
     Dosage: 40.0 MG, BID
     Route: 048
     Dates: end: 20170707
  7. CYTOTEC [Concomitant]
     Active Substance: MISOPROSTOL
     Indication: PROPHYLAXIS
     Dosage: 200 MICROGRAM, TID
     Route: 048
     Dates: end: 20170717
  8. LOXONIN [Concomitant]
     Active Substance: LOXOPROFEN SODIUM
     Indication: SQUAMOUS CELL CARCINOMA OF LUNG
     Dosage: 60 MG, TID
     Route: 048
     Dates: end: 20170717
  9. BAKTAR [Concomitant]
     Active Substance: SULFAMETHOXAZOLE\TRIMETHOPRIM
     Indication: PROPHYLAXIS
     Dosage: 1.0 G, QD
     Route: 048
     Dates: end: 20170717
  10. MAGMITT [Concomitant]
     Active Substance: MAGNESIUM OXIDE
     Indication: PROPHYLAXIS
     Dosage: 660.0 MG, TID
     Route: 048
     Dates: end: 20170709

REACTIONS (1)
  - Malignant neoplasm progression [Fatal]

NARRATIVE: CASE EVENT DATE: 20170730
